APPROVED DRUG PRODUCT: CARBAMAZEPINE
Active Ingredient: CARBAMAZEPINE
Strength: 200MG
Dosage Form/Route: TABLET;ORAL
Application: A071696 | Product #001
Applicant: ACTAVIS ELIZABETH LLC
Approved: Nov 9, 1987 | RLD: No | RS: No | Type: DISCN